FAERS Safety Report 24720764 (Version 1)
Quarter: 2024Q4

REPORT INFORMATION
  Report Type: Spontaneous
  Country: US (occurrence: US)
  Receive Date: 20241211
  Receipt Date: 20241211
  Transmission Date: 20250115
  Serious: No
  Sender: ALK-ABELLO
  Company Number: US-ALK-ABELLO A/S-2024AA004014

PATIENT

DRUGS (6)
  1. ALLERGENIC EXTRACT- PEANUT ARACHIS HYPOGAEA [Suspect]
     Active Substance: ALLERGENIC EXTRACT- PEANUT ARACHIS HYPOGAEA
     Indication: Diagnostic procedure
     Dosage: UNK
     Dates: start: 20240219
  2. ALLERGENIC EXTRACT- PEANUT ARACHIS HYPOGAEA [Suspect]
     Active Substance: ALLERGENIC EXTRACT- PEANUT ARACHIS HYPOGAEA
     Dosage: UNK
     Dates: start: 20240807
  3. ELIDEL [Concomitant]
     Active Substance: PIMECROLIMUS
  4. MUPIROCIN [Concomitant]
     Active Substance: MUPIROCIN
     Dosage: 2 PERCENT, PRN (TOPICAL OINTMENT 1 APPLICATION 2 TIMES A DAY AS NEEDED FOR 30 DAYS)
     Route: 061
     Dates: start: 20240425
  5. DESONIDE [Concomitant]
     Active Substance: DESONIDE
     Dosage: 0.05 PERCENT
     Route: 061
     Dates: start: 20240425
  6. PIMECROLIMUS [Concomitant]
     Active Substance: PIMECROLIMUS
     Dosage: 1 PERCENT, 1 APPLICATION TO AFFECTED AREA
     Route: 061

REACTIONS (1)
  - False negative investigation result [Unknown]
